FAERS Safety Report 19363468 (Version 1)
Quarter: 2021Q2

REPORT INFORMATION
  Report Type: Spontaneous
  Country: US (occurrence: US)
  Receive Date: 20210602
  Receipt Date: 20210602
  Transmission Date: 20210717
  Serious: Yes (Disabling)
  Sender: FDA-Public Use
  Company Number: None

PATIENT
  Age: 70 Year
  Sex: Male
  Weight: 99.79 kg

DRUGS (1)
  1. LATANOPROST 0.005% OPH SOLUTION (VA) RX#264859910 [Suspect]
     Active Substance: LATANOPROST
     Indication: GLAUCOMA
     Dosage: IN EACH EYE
     Dates: start: 2018, end: 20210501

REACTIONS (5)
  - Pharyngeal swelling [None]
  - Macular degeneration [None]
  - Headache [None]
  - Asthenia [None]
  - Oral herpes [None]

NARRATIVE: CASE EVENT DATE: 20210501
